FAERS Safety Report 14920951 (Version 1)
Quarter: 2018Q2

REPORT INFORMATION
  Report Type: Spontaneous
  Country: US (occurrence: US)
  Receive Date: 20180521
  Receipt Date: 20180521
  Transmission Date: 20180711
  Serious: No
  Sender: FDA-Public Use
  Company Number: US-BAUSCH-BL-2017-026547

PATIENT
  Age: 89 Year
  Sex: Female
  Weight: 45.85 kg

DRUGS (3)
  1. IPRATROPIUM BROMIDE NASAL SOLUTION 0.03% [Suspect]
     Active Substance: IPRATROPIUM BROMIDE
     Indication: HYPERSENSITIVITY
     Dosage: TWO PUFF IN EACH NOSTRIL
     Route: 045
     Dates: start: 2015
  2. IPRATROPIUM BROMIDE NASAL SOLUTION 0.03% [Suspect]
     Active Substance: IPRATROPIUM BROMIDE
     Dosage: ONE SPRAY IN EACH NOSTRIL TWO TO THREE TIMES A DAY
     Route: 045
     Dates: start: 2017
  3. SYSTANE ULTRA [Concomitant]
     Active Substance: POLYETHYLENE GLYCOL 400\PROPYLENE GLYCOL
     Indication: DRY EYE
     Dosage: TWO TO THREE TIMES PER DAY
     Route: 047
     Dates: start: 2013

REACTIONS (1)
  - Cough [Recovered/Resolved]
